FAERS Safety Report 4448863-8 (Version None)
Quarter: 2004Q3

REPORT INFORMATION
  Report Type: 
  Country: None (occurrence: None)
  Receive Date: 20040909
  Receipt Date: 20040827
  Transmission Date: 20050211
  Serious: Yes (Hospitalization)
  Sender: FDA-Public Use
  Company Number: 2004230667US

PATIENT
  Age: 73 Year
  Sex: Male
  Weight: 68 kg

DRUGS (7)
  1. ZYVOX [Suspect]
     Indication: STAPHYLOCOCCAL INFECTION
     Dosage: 600 MG, BID
     Dates: start: 20040826, end: 20040826
  2. COUMADIN [Concomitant]
  3. HEPARIN [Concomitant]
  4. PRAVASTATIN [Concomitant]
  5. RESTORIL [Concomitant]
  6. ANTIVERT (MECLOZINE HYDROCHLORIDE) [Concomitant]
  7. PERCOCET (OXYCODONE HYDROCHLORIDE, OXYCODONE TEREPHTHALATE) [Concomitant]

REACTIONS (3)
  - CONJUNCTIVAL OEDEMA [None]
  - EYE SWELLING [None]
  - SWELLING FACE [None]
